FAERS Safety Report 12278129 (Version 1)
Quarter: 2016Q2

REPORT INFORMATION
  Report Type: Spontaneous
  Country: NO (occurrence: NO)
  Receive Date: 20160418
  Receipt Date: 20160418
  Transmission Date: 20160815
  Serious: Yes (Other)
  Sender: FDA-Public Use
  Company Number: NO-INDIVIOR LIMITED-INDV-089730-2016

PATIENT
  Sex: Female

DRUGS (1)
  1. SUBOXONE [Suspect]
     Active Substance: BUPRENORPHINE HYDROCHLORIDE\NALOXONE HYDROCHLORIDE
     Indication: DRUG DEPENDENCE
     Dosage: 16 MG FOR A MONTH
     Route: 060

REACTIONS (7)
  - Apathy [Unknown]
  - Suicidal ideation [Unknown]
  - Malaise [Unknown]
  - Weight decreased [Unknown]
  - Depressed mood [Unknown]
  - Decreased appetite [Unknown]
  - Influenza like illness [Unknown]
